FAERS Safety Report 9639455 (Version 2)
Quarter: 2014Q1

REPORT INFORMATION
  Report Type: Spontaneous
  Country: US (occurrence: US)
  Receive Date: 20131022
  Receipt Date: 20140121
  Transmission Date: 20141002
  Serious: Yes (Hospitalization, Other)
  Sender: FDA-Public Use
  Company Number: US-JNJFOC-20131010594

PATIENT
  Sex: Male
  Weight: 90.27 kg

DRUGS (5)
  1. TYLENOL [Suspect]
     Indication: ARTHROPATHY
     Route: 065
  2. TYLENOL [Suspect]
     Indication: ARTHRALGIA
     Route: 065
  3. CELEBREX [Suspect]
     Indication: ARTHROPATHY
     Route: 065
     Dates: start: 2013, end: 2013
  4. CELEBREX [Suspect]
     Indication: ARTHRALGIA
     Route: 065
     Dates: start: 2013, end: 2013
  5. MANY OTHER UNSPECIFIED MEDICATIONS [Concomitant]
     Indication: PRODUCT USED FOR UNKNOWN INDICATION
     Route: 065

REACTIONS (7)
  - Somnolence [Unknown]
  - Swelling face [Unknown]
  - Blood pressure increased [Recovering/Resolving]
  - Intracranial aneurysm [Unknown]
  - Abasia [Unknown]
  - Cardiac pacemaker insertion [Unknown]
  - Drug ineffective [Unknown]
